FAERS Safety Report 5706505-5 (Version None)
Quarter: 2008Q2

REPORT INFORMATION
  Report Type: 
  Country: None (occurrence: None)
  Receive Date: 20080414
  Receipt Date: 20080410
  Transmission Date: 20081010
  Serious: Yes (Hospitalization)
  Sender: FDA-Public Use
  Company Number: 2008SP004056

PATIENT
  Age: 75 Year
  Sex: Male

DRUGS (6)
  1. TEMODAR [Suspect]
     Indication: BRAIN NEOPLASM
     Dosage: 250 MG;QM;PO
     Route: 048
  2. LOVASTATIN [Concomitant]
  3. HYDROCHLOROTHIAZIDE [Concomitant]
  4. ATENOLOL [Concomitant]
  5. COMPAZINE [Concomitant]
  6. MEGACE [Concomitant]

REACTIONS (2)
  - FEBRILE NEUTROPENIA [None]
  - PANCYTOPENIA [None]
